FAERS Safety Report 13553887 (Version 1)
Quarter: 2017Q2

REPORT INFORMATION
  Report Type: Spontaneous
  Country: US (occurrence: US)
  Receive Date: 20170517
  Receipt Date: 20170517
  Transmission Date: 20170830
  Serious: No
  Sender: FDA-Public Use
  Company Number: US-AMGEN-USASP2017072792

PATIENT
  Age: 63 Year
  Sex: Female

DRUGS (2)
  1. ENBREL [Suspect]
     Active Substance: ETANERCEPT
     Indication: RHEUMATOID ARTHRITIS
     Dosage: UNK
     Route: 065
  2. FAMVIR [Suspect]
     Active Substance: FAMCICLOVIR
     Indication: VIRAL INFECTION
     Dosage: UNK
     Route: 065

REACTIONS (4)
  - Sinusitis [Unknown]
  - Pain [Unknown]
  - White blood cell count decreased [Unknown]
  - Viral infection [Unknown]
